FAERS Safety Report 9215937 (Version 1)
Quarter: 2013Q2

REPORT INFORMATION
  Report Type: Spontaneous
  Country: US (occurrence: None)
  Receive Date: 20130403
  Receipt Date: 20130403
  Transmission Date: 20140414
  Serious: Yes (Congenital Anomaly, Other)
  Sender: FDA-Public Use
  Company Number: DAV-AE-MTX-13-23

PATIENT
  Sex: Female
  Weight: 1.45 kg

DRUGS (2)
  1. METHOTREXATE [Suspect]
     Indication: FOETAL EXPOSURE DURING PREGNANCY
  2. MISOPROSTOL [Concomitant]

REACTIONS (29)
  - Cerebral ventricle dilatation [None]
  - Atrial septal defect [None]
  - Patent ductus arteriosus [None]
  - Right atrial dilatation [None]
  - Dilatation ventricular [None]
  - Ascites [None]
  - Premature baby [None]
  - Apgar score low [None]
  - Neonatal respiratory distress syndrome [None]
  - Microcephaly [None]
  - Low set ears [None]
  - Skull malformation [None]
  - Dysmorphism [None]
  - Micrognathia [None]
  - Congenital eye disorder [None]
  - Hypertelorism of orbit [None]
  - Microphthalmos [None]
  - Congenital nose malformation [None]
  - Syndactyly [None]
  - Congenital musculoskeletal anomaly [None]
  - Congenital musculoskeletal anomaly [None]
  - Congenital foot malformation [None]
  - Gastrointestinal malformation [None]
  - Congenital deformity of clavicle [None]
  - Rib deformity [None]
  - Lung hyperinflation [None]
  - Cardiomegaly [None]
  - Eyelid disorder [None]
  - Maternal drugs affecting foetus [None]
